FAERS Safety Report 8859621 (Version 1)
Quarter: 2012Q4

REPORT INFORMATION
  Report Type: 
  Country: US (occurrence: US)
  Receive Date: 20121025
  Receipt Date: 20121025
  Transmission Date: 20130627
  Serious: Yes (Disabling)
  Sender: FDA-Public Use
  Company Number: US-SANOFI-AVENTIS-2012SA076218

PATIENT
  Age: 84 Year
  Sex: Female

DRUGS (1)
  1. LANTUS [Suspect]
     Dosage: Dose:24 unit(s)
     Route: 058
     Dates: start: 2010

REACTIONS (2)
  - Disability [Unknown]
  - Mobility decreased [Unknown]
